FAERS Safety Report 21812913 (Version 2)
Quarter: 2023Q1

REPORT INFORMATION
  Report Type: Spontaneous
  Country: NO (occurrence: NO)
  Receive Date: 20230103
  Receipt Date: 20230221
  Transmission Date: 20230417
  Serious: Yes (Other)
  Sender: FDA-Public Use
  Company Number: NO-TAKEDA-2022TUS082001

PATIENT
  Age: 40 Year
  Sex: Male

DRUGS (3)
  1. PANTOPRAZOLE [Suspect]
     Active Substance: PANTOPRAZOLE
     Indication: Vomiting
     Dosage: 80 MILLIGRAM, QD, 20 MILLIGRAM, QID
     Route: 065
  2. PANTOPRAZOLE [Suspect]
     Active Substance: PANTOPRAZOLE
     Indication: Haematochezia
     Dosage: 80 MILLIGRAM, QD, 40 MILLIGRAM, BID
     Route: 065
  3. PANTOPRAZOLE [Suspect]
     Active Substance: PANTOPRAZOLE
     Indication: Gastric ulcer
     Dosage: 20 MILLIGRAM, QD
     Route: 065

REACTIONS (4)
  - Haematemesis [Recovered/Resolved]
  - Eye discharge [Recovered/Resolved]
  - Increased upper airway secretion [Recovered/Resolved]
  - Feeling hot [Recovered/Resolved]
